FAERS Safety Report 8027693-4 (Version None)
Quarter: 2012Q1

REPORT INFORMATION
  Report Type: 
  Country: None (occurrence: None)
  Receive Date: 20120104
  Receipt Date: 20111229
  Transmission Date: 20120608
  Serious: Yes (Hospitalization, Other)
  Sender: FDA-Public Use
  Company Number: 1000026285

PATIENT
  Age: 27 Year
  Sex: Male

DRUGS (3)
  1. TRAZODONE HCL [Suspect]
  2. CITALOPRAM HYDROBROMIDE [Suspect]
  3. AMITRIPTYLINE (AMITRIPTPYLINE) [Suspect]

REACTIONS (11)
  - RHABDOMYOLYSIS [None]
  - VENTRICULAR TACHYCARDIA [None]
  - STATUS EPILEPTICUS [None]
  - RENAL FAILURE ACUTE [None]
  - PERSONALITY DISORDER [None]
  - CONVULSION [None]
  - SUICIDE ATTEMPT [None]
  - TOXICITY TO VARIOUS AGENTS [None]
  - HAEMODIALYSIS [None]
  - PULMONARY OEDEMA [None]
  - SELF-MEDICATION [None]
